FAERS Safety Report 15260526 (Version 1)
Quarter: 2018Q3

REPORT INFORMATION
  Report Type: Spontaneous
  Country: JP (occurrence: JP)
  Receive Date: 20180809
  Receipt Date: 20180809
  Transmission Date: 20181010
  Serious: Yes (Death, Other)
  Sender: FDA-Public Use
  Company Number: JP-BAYER-2018-143347

PATIENT
  Age: 74 Year
  Sex: Male

DRUGS (2)
  1. NEXAVAR [Suspect]
     Active Substance: SORAFENIB
     Indication: HEPATOCELLULAR CARCINOMA
     Dosage: UNK
     Route: 048
     Dates: start: 201612, end: 201709
  2. STIVARGA [Suspect]
     Active Substance: REGORAFENIB
     Indication: HEPATOCELLULAR CARCINOMA
     Dosage: DAILY DOSE 160 MG
     Route: 048
     Dates: start: 201709

REACTIONS (6)
  - Death [Fatal]
  - Hepatic failure [None]
  - Hepatic encephalopathy [None]
  - Hepatocellular carcinoma [None]
  - Palmar-plantar erythrodysaesthesia syndrome [None]
  - Diarrhoea [None]
